FAERS Safety Report 4451145-1 (Version None)
Quarter: 2004Q3

REPORT INFORMATION
  Report Type: 
  Country: None (occurrence: None)
  Receive Date: 20040913
  Receipt Date: 20040609
  Transmission Date: 20050211
  Serious: No
  Sender: FDA-Public Use
  Company Number: 2004-BP-04581BP (0)

PATIENT
  Age: 82 Year
  Sex: Male

DRUGS (10)
  1. SPIRIVA [Suspect]
     Indication: CHRONIC OBSTRUCTIVE AIRWAYS DISEASE
     Dosage: 18 MCG (18 MCG, 2-3 DAYS)
     Dates: start: 20040606
  2. ATROVENT [Concomitant]
  3. FORADIL (FORMOTEROL FUMURATE) [Concomitant]
  4. ALBUTEROL [Concomitant]
  5. LORAZEPAM [Concomitant]
  6. CELEXA [Concomitant]
  7. VISTARIL [Concomitant]
  8. PREDNISONE [Concomitant]
  9. GLYBURIDE (GLIBENCLAMINE) [Concomitant]
  10. TRIAMTERENE (TRIAMTERENE) [Concomitant]

REACTIONS (5)
  - CONFUSIONAL STATE [None]
  - DISORIENTATION [None]
  - DRUG INEFFECTIVE [None]
  - FEELING ABNORMAL [None]
  - SLEEP DISORDER [None]
